FAERS Safety Report 11218893 (Version 1)
Quarter: 2015Q2

REPORT INFORMATION
  Report Type: Spontaneous
  Country: US (occurrence: None)
  Receive Date: 20150623
  Receipt Date: 20150623
  Transmission Date: 20150821
  Serious: No
  Sender: FDA-Public Use
  Company Number: None

PATIENT
  Age: 0 Day
  Sex: Male

DRUGS (6)
  1. PHENYTYN-SOD EXT 100 MG CAPSULE [Suspect]
     Active Substance: PHENYTOIN SODIUM, EXTENDED
     Indication: SEIZURE
     Route: 048
     Dates: start: 20150410
  2. METOPROLO SUCCINATE [Concomitant]
     Active Substance: METOPROLOL SUCCINATE
  3. ASPIRIN. [Concomitant]
     Active Substance: ASPIRIN
  4. HYDROCHLOROTHIAZIDE. [Concomitant]
     Active Substance: HYDROCHLOROTHIAZIDE
  5. MULTIVITIMAN [Concomitant]
  6. BENAZEPRIL [Concomitant]
     Active Substance: BENAZEPRIL\BENAZEPRIL HYDROCHLORIDE

REACTIONS (2)
  - Product substitution issue [None]
  - Petit mal epilepsy [None]

NARRATIVE: CASE EVENT DATE: 20150410
